FAERS Safety Report 6241909-6 (Version None)
Quarter: 2009Q2

REPORT INFORMATION
  Report Type: 
  Country: None (occurrence: None)
  Receive Date: 20090623
  Receipt Date: 20090611
  Transmission Date: 20091009
  Serious: Yes (Other)
  Sender: FDA-Public Use
  Company Number: JP-PFIZER INC-2009220594

PATIENT

DRUGS (1)
  1. UNASYN [Suspect]
     Dosage: UNK
     Route: 042

REACTIONS (2)
  - PNEUMONIA [None]
  - RENAL IMPAIRMENT [None]
